FAERS Safety Report 9451654 (Version 1)
Quarter: 2013Q3

REPORT INFORMATION
  Report Type: Spontaneous
  Country: BE (occurrence: BE)
  Receive Date: 20130812
  Receipt Date: 20130812
  Transmission Date: 20140515
  Serious: Yes (Hospitalization)
  Sender: FDA-Public Use
  Company Number: BE-AMGEN-BELSP2013055097

PATIENT
  Age: 57 Year
  Sex: Female

DRUGS (8)
  1. ENBREL [Suspect]
     Indication: RHEUMATOID ARTHRITIS
     Dosage: 25 MG, 2X/WK
     Route: 058
     Dates: start: 1998, end: 20040315
  2. FOSAMAX [Concomitant]
     Dosage: UNK
     Route: 048
  3. CALCIUM [Concomitant]
     Dosage: UNK
     Route: 048
  4. DUROGESIC [Concomitant]
     Dosage: UNK
     Route: 062
  5. LOMIR [Concomitant]
     Dosage: UNK
     Route: 048
  6. MEDROL                             /00049601/ [Concomitant]
     Dosage: UNK
     Route: 048
  7. BREXINE [Concomitant]
     Dosage: UNK
     Route: 048
  8. TAMOXIFEN [Concomitant]
     Dosage: UNK
     Route: 048
     Dates: start: 2003

REACTIONS (1)
  - Osteitis [Recovering/Resolving]
